FAERS Safety Report 5976013-5 (Version None)
Quarter: 2008Q4

REPORT INFORMATION
  Report Type: 
  Country: None (occurrence: None)
  Receive Date: 20081202
  Receipt Date: 20081121
  Transmission Date: 20090506
  Serious: Yes (Hospitalization)
  Sender: FDA-Public Use
  Company Number: JP-WYE-H06995708

PATIENT
  Sex: Male

DRUGS (2)
  1. HYPEN [Suspect]
     Indication: BACK PAIN
     Route: 048
     Dates: start: 20070101
  2. GASLON [Suspect]
     Indication: BACK PAIN
     Route: 048
     Dates: start: 20070101

REACTIONS (1)
  - HAEMATEMESIS [None]
